FAERS Safety Report 16662349 (Version 1)
Quarter: 2019Q3

REPORT INFORMATION
  Report Type: Report from Study
  Country: US (occurrence: US)
  Receive Date: 20190802
  Receipt Date: 20190802
  Transmission Date: 20191004
  Serious: No
  Sender: FDA-Public Use
  Company Number: US-EXELIXIS-CABO-19018979

PATIENT
  Sex: Male

DRUGS (18)
  1. MILK THISTLE [Concomitant]
     Active Substance: DIETARY SUPPLEMENT\HERBALS\MILK THISTLE
  2. LUTEIN-ZEAXANTHIN [Concomitant]
  3. COENZYME Q10 [Concomitant]
     Active Substance: UBIDECARENONE
  4. CITRACAL PLUS [Concomitant]
     Active Substance: CALCIUM\MAGNESIUM\VITAMIN D\ZINC
  5. SENNA [Concomitant]
     Active Substance: SENNA LEAF\SENNOSIDES\SENNOSIDES A AND B
  6. MORPHINE SULFATE. [Concomitant]
     Active Substance: MORPHINE SULFATE
  7. ZOMETA [Concomitant]
     Active Substance: ZOLEDRONIC ACID
  8. PROSTATE HEALTH [Concomitant]
  9. PROBIOTIC-10 [Concomitant]
  10. NORCO [Concomitant]
     Active Substance: ACETAMINOPHEN\HYDROCODONE BITARTRATE
  11. LOSARTAN POTASSIUM. [Concomitant]
     Active Substance: LOSARTAN POTASSIUM
  12. FOLIC ACID. [Concomitant]
     Active Substance: FOLIC ACID
  13. FISH OIL [Concomitant]
     Active Substance: FISH OIL
  14. CABOMETYX [Suspect]
     Active Substance: CABOZANTINIB S-MALATE
     Indication: RENAL CANCER
     Dosage: 40 MG, QD
     Route: 048
     Dates: start: 20180116
  15. TRIPLE OMEGA 3 6 9 [Concomitant]
  16. ENTECAVIR. [Concomitant]
     Active Substance: ENTECAVIR
  17. SIMVASTATIN. [Concomitant]
     Active Substance: SIMVASTATIN
  18. GABAPENTIN. [Concomitant]
     Active Substance: GABAPENTIN

REACTIONS (3)
  - Plantar erythema [Unknown]
  - Fatigue [Unknown]
  - Pain in extremity [Unknown]
